FAERS Safety Report 17846070 (Version 1)
Quarter: 2020Q2

REPORT INFORMATION
  Report Type: Spontaneous
  Country: US (occurrence: US)
  Receive Date: 20200531
  Receipt Date: 20200531
  Transmission Date: 20200714
  Serious: No
  Sender: FDA-Public Use
  Company Number: None

PATIENT
  Age: 64 Year
  Sex: Female
  Weight: 90 kg

DRUGS (22)
  1. TEVETEN [Concomitant]
     Active Substance: EPROSARTAN MESYLATE
  2. METRONIDAZOLE TOPICAL CREAM [Concomitant]
     Active Substance: METRONIDAZOLE
  3. BABY ASPIRIN [Concomitant]
     Active Substance: ASPIRIN
  4. EVENING PRIMROSE [Concomitant]
  5. COQ10 [Concomitant]
     Active Substance: UBIDECARENONE
  6. ARMOUR THYROID [Concomitant]
     Active Substance: THYROID, PORCINE
  7. L-GLURAMINE [Concomitant]
  8. ISOSORBIDE. [Concomitant]
     Active Substance: ISOSORBIDE
  9. CLINDAMYCIN PHOSPHATE TOPICAL LOTION [Concomitant]
  10. CHLORDIAZEPOXIDE GENERIC FOR LIBRIUM [Suspect]
     Active Substance: CHLORDIAZEPOXIDE
     Indication: INSOMNIA
     Dosage: ?          QUANTITY:2 CAPSULE(S);?
     Route: 048
     Dates: start: 20200520, end: 20200528
  11. BIVENTRICULAR PACEMAKER/DEFIBRILLATOR [Concomitant]
  12. L-ARGENINE [Concomitant]
  13. VITAMIN B COMPLEX [Concomitant]
     Active Substance: CYANOCOBALAMIN\DEXPANTHENOL\NIACINAMIDE\PYRIDOXINE HYDROCHLORIDE\RIBOFLAVIN 5^-PHOSPHATE SODIUM\THIAMINE HYDROCHLORIDE\VITAMIN B COMPLEX
  14. WELLBUTRIN SR [Concomitant]
     Active Substance: BUPROPION HYDROCHLORIDE
  15. L-METHYLFOLATE [Concomitant]
     Active Substance: LEVOMEFOLIC ACID
  16. DRIED BEEF LIVER [Concomitant]
  17. KRILL OIL [Concomitant]
     Active Substance: DIETARY SUPPLEMENT\KRILL OIL
  18. TAURINE [Concomitant]
     Active Substance: TAURINE
  19. VITAMIN D [Concomitant]
     Active Substance: VITAMIN D NOS
  20. VITAMIN E [Concomitant]
     Active Substance: .ALPHA.-TOCOPHEROL
  21. ZINC-L-CARNOSINE [Concomitant]
  22. CHLORDIAZEPOXIDE GENERIC FOR LIBRIUM [Suspect]
     Active Substance: CHLORDIAZEPOXIDE
     Indication: ANXIETY
     Dosage: ?          QUANTITY:2 CAPSULE(S);?
     Route: 048
     Dates: start: 20200520, end: 20200528

REACTIONS (2)
  - Frequent bowel movements [None]
  - Gastrointestinal pain [None]

NARRATIVE: CASE EVENT DATE: 20200528
